FAERS Safety Report 9721519 (Version 3)
Quarter: 2014Q1

REPORT INFORMATION
  Report Type: Report from Study
  Country: US (occurrence: US)
  Receive Date: 20131130
  Receipt Date: 20140131
  Transmission Date: 20141002
  Serious: No
  Sender: FDA-Public Use
  Company Number: PHEH2013US010274

PATIENT
  Age: 44 Year
  Sex: Female

DRUGS (2)
  1. TASIGNA [Suspect]
     Indication: CHRONIC MYELOID LEUKAEMIA
     Dosage: 200 MG, BID
     Route: 048
     Dates: start: 20130411
  2. TASIGNA [Suspect]
     Dosage: 200 MG, QD
     Route: 048

REACTIONS (6)
  - Muscle atrophy [Not Recovered/Not Resolved]
  - Breast discharge [Recovered/Resolved]
  - Mobility decreased [Recovered/Resolved]
  - Blood creatine phosphokinase increased [Recovered/Resolved]
  - Constipation [Recovering/Resolving]
  - Myalgia [Recovered/Resolved]
